FAERS Safety Report 8368409-1 (Version None)
Quarter: 2012Q2

REPORT INFORMATION
  Report Type: 
  Country: None (occurrence: None)
  Receive Date: 20120517
  Receipt Date: 20120509
  Transmission Date: 20120825
  Serious: Yes (Life-Threatening, Hospitalization, Other)
  Sender: FDA-Public Use
  Company Number: US-ELI_LILLY_AND_COMPANY-US201007000382

PATIENT
  Sex: Female

DRUGS (7)
  1. FORTEO [Suspect]
     Indication: OSTEOPOROSIS
     Dosage: 20 UG, DAILY (1/D)
     Dates: start: 20100501
  2. FORTEO [Suspect]
     Dosage: 20 UG, DAILY (1/D)
  3. FORTEO [Suspect]
     Dosage: 20 UG, QD
  4. FORTEO [Suspect]
     Dosage: 20 UG, DAILY (1/D)
  5. FORTEO [Suspect]
     Dosage: 20 UG, QD
     Route: 065
  6. FORTEO [Suspect]
     Dosage: 20 UG, QD
  7. FORTEO [Suspect]
     Dosage: 20 UG, DAILY (1/D)

REACTIONS (27)
  - PAROTID GLAND ENLARGEMENT [None]
  - PAIN [None]
  - OEDEMA PERIPHERAL [None]
  - RENAL FAILURE [None]
  - LIGAMENT SPRAIN [None]
  - MUSCULAR WEAKNESS [None]
  - NECK PAIN [None]
  - ABDOMINAL DISCOMFORT [None]
  - MUSCLE SPASMS [None]
  - MALAISE [None]
  - DRUG DOSE OMISSION [None]
  - BACK PAIN [None]
  - BODY TEMPERATURE DECREASED [None]
  - SLEEP DISORDER [None]
  - INJECTION SITE HAEMATOMA [None]
  - LOSS OF CONSCIOUSNESS [None]
  - LOCAL SWELLING [None]
  - PRURITUS [None]
  - MUSCULOSKELETAL DISCOMFORT [None]
  - NAUSEA [None]
  - NASAL CONGESTION [None]
  - PAIN IN EXTREMITY [None]
  - PULMONARY CONGESTION [None]
  - HOSPITALISATION [None]
  - GAIT DISTURBANCE [None]
  - CONTUSION [None]
  - INJECTION SITE PAIN [None]
